FAERS Safety Report 10016675 (Version 3)
Quarter: 2014Q2

REPORT INFORMATION
  Report Type: Report from Study
  Country: JP (occurrence: JP)
  Receive Date: 20140317
  Receipt Date: 20140528
  Transmission Date: 20141212
  Serious: Yes (Hospitalization)
  Sender: FDA-Public Use
  Company Number: JP-BRISTOL-MYERS SQUIBB COMPANY-20458378

PATIENT
  Age: 53 Year
  Sex: Male

DRUGS (13)
  1. BLINDED: IPILIMUMAB [Suspect]
     Indication: SMALL CELL LUNG CANCER
     Route: 042
     Dates: start: 20140117, end: 20140221
  2. ETOPOSIDE [Suspect]
     Indication: SMALL CELL LUNG CANCER
     Route: 042
     Dates: start: 20131113, end: 20140221
  3. CARBOPLATIN [Suspect]
     Indication: SMALL CELL LUNG CANCER
     Route: 042
     Dates: start: 20131113, end: 20140219
  4. BLINDED: PLACEBO [Suspect]
     Indication: SMALL CELL LUNG CANCER
     Route: 042
     Dates: start: 20140117, end: 20140221
  5. MAGNESIUM OXIDE [Concomitant]
     Dates: start: 20131029
  6. OXYCODONE HCL [Concomitant]
     Dates: start: 20131029
  7. BROTIZOLAM [Concomitant]
     Dates: start: 20131111
  8. FELBINAC [Concomitant]
     Dates: start: 20131111
  9. METOCLOPRAMIDE [Concomitant]
     Dates: start: 20131117
  10. LANSOPRAZOLE [Concomitant]
     Dates: start: 20131119
  11. SENNOSIDE [Concomitant]
     Dates: start: 20140114
  12. HIRUDOID [Concomitant]
     Dosage: LOTION
     Dates: start: 20131221
  13. SODIUM GUALENATE [Concomitant]
     Dates: start: 20131209

REACTIONS (1)
  - VIIth nerve paralysis [Recovered/Resolved]
